FAERS Safety Report 23487851 (Version 1)
Quarter: 2024Q1

REPORT INFORMATION
  Report Type: Spontaneous
  Country: US (occurrence: None)
  Receive Date: 20240206
  Receipt Date: 20240206
  Transmission Date: 20240409
  Serious: Yes (Death)
  Sender: FDA-Public Use
  Company Number: None

PATIENT
  Age: 75 Year
  Sex: Male

DRUGS (8)
  1. MAVYRET [Suspect]
     Active Substance: GLECAPREVIR\PIBRENTASVIR
     Indication: Hepatitis C
     Dosage: FREQUENCY : DAILY;?DOSE: 300-120
     Route: 048
     Dates: start: 20230805, end: 20230922
  2. ATROVENT HFA [Concomitant]
     Active Substance: IPRATROPIUM BROMIDE
  3. ALBUTEROL SULFATE [Concomitant]
     Active Substance: ALBUTEROL SULFATE
  4. ALLOPURINOL [Concomitant]
     Active Substance: ALLOPURINOL
  5. CARVEDILOL [Concomitant]
     Active Substance: CARVEDILOL
  6. ISOSORBIDE MONONITRATE [Concomitant]
     Active Substance: ISOSORBIDE MONONITRATE
  7. FUROSEMIDE [Concomitant]
     Active Substance: FUROSEMIDE
  8. LEVOTHYROXINE [Concomitant]
     Active Substance: LEVOTHYROXINE\LEVOTHYROXINE SODIUM

REACTIONS (1)
  - Death [None]

NARRATIVE: CASE EVENT DATE: 20240205
